FAERS Safety Report 10196770 (Version 1)
Quarter: 2014Q2

REPORT INFORMATION
  Report Type: Spontaneous
  Country: ES (occurrence: ES)
  Receive Date: 20140527
  Receipt Date: 20140527
  Transmission Date: 20141212
  Serious: Yes (Other)
  Sender: FDA-Public Use
  Company Number: ES-009507513-1405ESP009306

PATIENT
  Sex: 0

DRUGS (6)
  1. RIBAVIRIN [Suspect]
     Indication: HEPATIC CIRRHOSIS
     Route: 048
  2. RIBAVIRIN [Suspect]
     Indication: HEPATITIS C
  3. TELAPREVIR [Suspect]
     Indication: HEPATIC CIRRHOSIS
  4. TELAPREVIR [Suspect]
     Indication: HEPATITIS C
  5. PEGINTERFERON ALFA-2A [Suspect]
     Indication: HEPATIC CIRRHOSIS
  6. PEGINTERFERON ALFA-2A [Suspect]
     Indication: HEPATITIS C

REACTIONS (1)
  - Aplastic anaemia [Recovered/Resolved]
